FAERS Safety Report 13436757 (Version 1)
Quarter: 2017Q2

REPORT INFORMATION
  Report Type: Spontaneous
  Country: US (occurrence: US)
  Receive Date: 20170413
  Receipt Date: 20170413
  Transmission Date: 20170830
  Serious: No
  Sender: FDA-Public Use
  Company Number: US-ACTELION-A-NJ2017-152450

PATIENT
  Age: 62 Year
  Sex: Female

DRUGS (19)
  1. TRACLEER [Suspect]
     Active Substance: BOSENTAN
     Indication: PULMONARY ARTERIAL HYPERTENSION
     Dosage: 125 MG, UNK
     Route: 048
     Dates: start: 20170116
  2. MYRBETRIQ [Concomitant]
     Active Substance: MIRABEGRON
     Dosage: 25 MG, UNK
  3. HYDROMET [Concomitant]
     Active Substance: HOMATROPINE METHYLBROMIDE\HYDROCODONE BITARTRATE
  4. ZETIA [Concomitant]
     Active Substance: EZETIMIBE
     Dosage: UNK
  5. WARFARIN [Concomitant]
     Active Substance: WARFARIN
  6. LUMIGAN [Concomitant]
     Active Substance: BIMATOPROST
  7. SYNTHROID [Concomitant]
     Active Substance: LEVOTHYROXINE SODIUM
  8. PROVENTIL HFA [Concomitant]
     Active Substance: ALBUTEROL SULFATE
  9. GABAPENTIN. [Concomitant]
     Active Substance: GABAPENTIN
  10. LATANOPROST. [Concomitant]
     Active Substance: LATANOPROST
  11. TRAMADOL HCL [Concomitant]
     Active Substance: TRAMADOL HYDROCHLORIDE
  12. LISINOPRIL. [Concomitant]
     Active Substance: LISINOPRIL
  13. GLIPIZIDE. [Concomitant]
     Active Substance: GLIPIZIDE
  14. SPIRONOLACTONE. [Concomitant]
     Active Substance: SPIRONOLACTONE
  15. SPIRIVA [Concomitant]
     Active Substance: TIOTROPIUM BROMIDE MONOHYDRATE
  16. ALREX [Concomitant]
     Active Substance: LOTEPREDNOL ETABONATE
  17. AUGMENTIN [Concomitant]
     Active Substance: AMOXICILLIN\CLAVULANATE POTASSIUM
     Dosage: 200 MG, UNK
  18. METFORMIN HCL [Concomitant]
     Active Substance: METFORMIN HYDROCHLORIDE
  19. TRAZODONE HYDROCHLORIDE. [Concomitant]
     Active Substance: TRAZODONE HYDROCHLORIDE

REACTIONS (1)
  - Urinary tract infection [Unknown]
